FAERS Safety Report 13440431 (Version 1)
Quarter: 2017Q2

REPORT INFORMATION
  Report Type: Spontaneous
  Country: US (occurrence: US)
  Receive Date: 20170413
  Receipt Date: 20170413
  Transmission Date: 20170830
  Serious: No
  Sender: FDA-Public Use
  Company Number: US-009507513-1703USA007246

PATIENT
  Age: 58 Year
  Sex: Male

DRUGS (2)
  1. ZOLINZA [Suspect]
     Active Substance: VORINOSTAT
     Indication: CHRONIC MYELOMONOCYTIC LEUKAEMIA
     Dosage: UNK UNK, CYCLICAL
     Route: 048
     Dates: start: 201209
  2. AZACITIDINE. [Concomitant]
     Active Substance: AZACITIDINE
     Indication: CHRONIC MYELOMONOCYTIC LEUKAEMIA
     Dosage: 4 CYCLES
     Route: 048
     Dates: start: 201209

REACTIONS (1)
  - Product use in unapproved indication [Unknown]

NARRATIVE: CASE EVENT DATE: 201209
